FAERS Safety Report 12658770 (Version 1)
Quarter: 2016Q3

REPORT INFORMATION
  Report Type: Spontaneous
  Country: US (occurrence: None)
  Receive Date: 20160816
  Receipt Date: 20160816
  Transmission Date: 20161109
  Serious: Yes (Disabling)
  Sender: FDA-Public Use
  Company Number: None

PATIENT
  Age: 25 Year
  Sex: Female
  Weight: 58.06 kg

DRUGS (1)
  1. D-AMPHETAMINE SALT COMBO [Suspect]
     Active Substance: AMPHETAMINE ASPARTATE\AMPHETAMINE SULFATE\DEXTROAMPHETAMINE SACCHARATE\DEXTROAMPHETAMINE SULFATE
     Indication: ATTENTION DEFICIT/HYPERACTIVITY DISORDER
     Route: 048

REACTIONS (6)
  - Impaired work ability [None]
  - Drug ineffective [None]
  - Fatigue [None]
  - Antisocial behaviour [None]
  - Amnesia [None]
  - Product substitution issue [None]

NARRATIVE: CASE EVENT DATE: 20160301
